FAERS Safety Report 5284315-3 (Version None)
Quarter: 2007Q2

REPORT INFORMATION
  Report Type: 
  Country: None (occurrence: None)
  Receive Date: 20070403
  Receipt Date: 20070323
  Transmission Date: 20071010
  Serious: Yes (Hospitalization)
  Sender: FDA-Public Use
  Company Number: US-AMGEN-US216418

PATIENT
  Sex: Female

DRUGS (6)
  1. PANITUMUMAB [Suspect]
     Indication: COLORECTAL CANCER
     Route: 042
     Dates: start: 20070305
  2. VITAMIN CAP [Concomitant]
     Route: 048
     Dates: end: 20070316
  3. CALCIUM WITH VITAMIN D [Concomitant]
     Route: 048
     Dates: end: 20070316
  4. IRINOTECAN [Concomitant]
     Route: 042
     Dates: start: 20070305
  5. LEUCOVORIN CALCIUM [Concomitant]
     Route: 042
     Dates: start: 20070305
  6. FLUOROURACIL [Concomitant]
     Route: 042
     Dates: start: 20070305

REACTIONS (3)
  - DEHYDRATION [None]
  - HYPOKALAEMIA [None]
  - NAUSEA [None]
